FAERS Safety Report 12606622 (Version 3)
Quarter: 2020Q4

REPORT INFORMATION
  Report Type: Report from Study
  Country: DE (occurrence: JP)
  Receive Date: 20160729
  Receipt Date: 20201119
  Transmission Date: 20210113
  Serious: Yes (Other)
  Sender: FDA-Public Use
  Company Number: JP-BRISTOL-MYERS SQUIBB COMPANY-21558473

PATIENT
  Age: 60 Year
  Sex: Male

DRUGS (3)
  1. ZOMETA [Suspect]
     Active Substance: ZOLEDRONIC ACID
     Indication: METASTASES TO BONE
     Dosage: UNK, UNKNOWN
     Route: 065
  2. CISPLATIN. [Suspect]
     Active Substance: CISPLATIN
     Indication: SQUAMOUS CELL CARCINOMA OF HEAD AND NECK
     Dosage: UNK, UNKNOWN
     Route: 041
  3. CETUXIMAB. [Suspect]
     Active Substance: CETUXIMAB
     Indication: SQUAMOUS CELL CARCINOMA OF HEAD AND NECK
     Dosage: UNK, UNKNOWN
     Route: 041
     Dates: start: 20140828, end: 20150309

REACTIONS (29)
  - Nausea [Recovered/Resolved]
  - Dermatitis acneiform [Recovering/Resolving]
  - Pyrexia [Recovered/Resolved]
  - Dry skin [Recovering/Resolving]
  - White blood cell count decreased [Recovered/Resolved]
  - Blood alkaline phosphatase increased [Recovered/Resolved]
  - Anaemia [Recovering/Resolving]
  - Fatigue [Recovered/Resolved]
  - Femur fracture [Unknown]
  - Lip infection [Recovered/Resolved]
  - Blood creatinine increased [Recovered/Resolved]
  - Hypochloraemia [Recovered/Resolved]
  - Hypercalcaemia [Recovered/Resolved]
  - Paronychia [Recovering/Resolving]
  - Hypocalcaemia [Recovered/Resolved]
  - Malignant neoplasm progression [Unknown]
  - Decreased appetite [Recovered/Resolved]
  - Hyponatraemia [Recovered/Resolved]
  - Blood lactate dehydrogenase increased [Recovering/Resolving]
  - Aspartate aminotransferase increased [Recovered/Resolved]
  - Blood urea increased [Recovered/Resolved]
  - Infusion related reaction [Recovered/Resolved]
  - Skin infection [Recovering/Resolving]
  - Hyperkalaemia [Recovered/Resolved]
  - Neutrophil count decreased [Recovered/Resolved]
  - Alanine aminotransferase increased [Recovered/Resolved]
  - Platelet count decreased [Recovered/Resolved]
  - Hypokalaemia [Recovered/Resolved]
  - Hypomagnesaemia [Recovered/Resolved]

NARRATIVE: CASE EVENT DATE: 20140828
